FAERS Safety Report 25254152 (Version 2)
Quarter: 2025Q2

REPORT INFORMATION
  Report Type: Spontaneous
  Country: US (occurrence: US)
  Receive Date: 20250430
  Receipt Date: 20250505
  Transmission Date: 20250717
  Serious: No
  Sender: Kenvue
  Company Number: US-KENVUE-20250402309

PATIENT
  Sex: Female

DRUGS (5)
  1. WOMENS ROGAINE [Suspect]
     Active Substance: MINOXIDIL
     Indication: Alopecia
     Dosage: JUST PUT THREE OR FOUR OF A SIZE OF 50 CENT PIECE, ONCE A DAY
     Route: 061
     Dates: start: 2022
  2. WOMENS ROGAINE [Suspect]
     Active Substance: MINOXIDIL
     Dosage: JUST PUT THREE OR FOUR OF A SIZE OF 50 CENT PIECE, ONCE A DAY
     Route: 061
  3. UNSPECIFIED INGREDIENT [Concomitant]
     Active Substance: UNSPECIFIED INGREDIENT
     Indication: Product used for unknown indication
  4. WOMENS ROGAINE UNSCENTED [Suspect]
     Active Substance: MINOXIDIL
     Indication: Alopecia
     Dosage: JUST PUT THREE OR FOUR OF A SIZE OF 50 CENT PIECE, ONCE A DAY
     Route: 061
     Dates: start: 2022
  5. WOMENS ROGAINE UNSCENTED [Suspect]
     Active Substance: MINOXIDIL
     Dosage: JUST PUT THREE OR FOUR OF A SIZE OF 50 CENT PIECE, ONCE A DAY, ONCE A DAY
     Route: 061

REACTIONS (8)
  - Application site dryness [Recovering/Resolving]
  - Dizziness [Recovering/Resolving]
  - Application site exfoliation [Recovering/Resolving]
  - Wrong technique in product usage process [Unknown]
  - Poor quality product administered [Unknown]
  - Product use in unapproved indication [Unknown]
  - Contraindicated product administered [Unknown]
  - Product container issue [Unknown]

NARRATIVE: CASE EVENT DATE: 20220101
